FAERS Safety Report 5611907-1 (Version None)
Quarter: 2008Q1

REPORT INFORMATION
  Report Type: 
  Country: None (occurrence: None)
  Receive Date: 20080204
  Receipt Date: 20080128
  Transmission Date: 20080703
  Serious: No
  Sender: FDA-Public Use
  Company Number: US-BAYER-200811012NA

PATIENT
  Sex: Female

DRUGS (1)
  1. PRECOSE [Suspect]
     Indication: BLOOD GLUCOSE FLUCTUATION
     Dates: start: 20070301

REACTIONS (3)
  - ABDOMINAL PAIN UPPER [None]
  - DIARRHOEA [None]
  - VOMITING [None]
